FAERS Safety Report 22968193 (Version 2)
Quarter: 2023Q4

REPORT INFORMATION
  Report Type: Spontaneous
  Country: US (occurrence: US)
  Receive Date: 20230921
  Receipt Date: 20231123
  Transmission Date: 20240109
  Serious: No
  Sender: FDA-Public Use
  Company Number: US-KYOWAKIRIN-2023KK014607

PATIENT

DRUGS (5)
  1. CRYSVITA [Suspect]
     Active Substance: BUROSUMAB-TWZA
     Indication: Hereditary hypophosphataemic rickets
     Dosage: 20 MG, 1X/4 WEEKS
     Route: 058
     Dates: start: 20230907
  2. CRYSVITA [Suspect]
     Active Substance: BUROSUMAB-TWZA
     Dosage: 40 MG, 1X/4 WEEKS
     Route: 058
     Dates: start: 202309
  3. CRYSVITA [Suspect]
     Active Substance: BUROSUMAB-TWZA
     Indication: Hereditary hypophosphataemic rickets
     Dosage: 60 MG, 1X/4 WEEKS
     Route: 058
     Dates: start: 20230907
  4. UBRELVY [Concomitant]
     Active Substance: UBROGEPANT
     Indication: Migraine
     Dosage: UNK
     Route: 065
  5. ADVIL [Concomitant]
     Active Substance: IBUPROFEN
     Indication: Headache
     Dosage: UNK
     Route: 065

REACTIONS (8)
  - Injection site pain [Unknown]
  - Injection site pain [Unknown]
  - Injection site bruising [Unknown]
  - Injection site reaction [Unknown]
  - Burning sensation [Unknown]
  - Injection site erythema [Unknown]
  - Migraine [Unknown]
  - Headache [Unknown]

NARRATIVE: CASE EVENT DATE: 20230907
